FAERS Safety Report 6121334-9 (Version None)
Quarter: 2009Q1

REPORT INFORMATION
  Report Type: 
  Country: None (occurrence: None)
  Receive Date: 20090313
  Receipt Date: 20090225
  Transmission Date: 20090719
  Serious: Yes (Hospitalization)
  Sender: FDA-Public Use
  Company Number: 8037650

PATIENT
  Age: 49 Year
  Sex: Female
  Weight: 38 kg

DRUGS (6)
  1. CIMZIA [Suspect]
     Indication: CROHN'S DISEASE
     Dosage: 400 MG 1/2W SC
     Route: 058
     Dates: start: 20080714, end: 20080811
  2. QUESTRAN [Concomitant]
  3. ENTOCORT EC [Concomitant]
  4. AZATHIOPRIME [Concomitant]
  5. PREVACID [Concomitant]
  6. PREDNISONE [Concomitant]

REACTIONS (3)
  - SMALL INTESTINAL OBSTRUCTION [None]
  - SMALL INTESTINAL STENOSIS [None]
  - SMALL INTESTINE CARCINOMA [None]
